FAERS Safety Report 8582693-0 (Version None)
Quarter: 2012Q3

REPORT INFORMATION
  Report Type: 
  Country: None (occurrence: None)
  Receive Date: 20120809
  Receipt Date: 20120731
  Transmission Date: 20120928
  Serious: Yes (Other)
  Sender: FDA-Public Use
  Company Number: CA-ROCHE-1097669

PATIENT
  Sex: Male

DRUGS (6)
  1. SINGULAIR [Concomitant]
  2. XOLAIR [Suspect]
     Indication: ASTHMA
     Route: 058
     Dates: start: 20110225
  3. ATROVENT [Concomitant]
     Dosage: 4-6 TIMES DAILY
  4. VENTOLIN [Concomitant]
     Dosage: 2 PUFFS 4 TIMES A DAY
  5. SYMBICORT [Concomitant]
     Dosage: 8 PUFFS A DAY
  6. PREDNISONE TAB [Concomitant]
     Dates: start: 20120104, end: 20120609

REACTIONS (8)
  - ASTHMA [None]
  - HYPOPNOEA [None]
  - PYREXIA [None]
  - PRODUCTIVE COUGH [None]
  - RESPIRATORY TRACT INFECTION [None]
  - RALES [None]
  - SPINAL PAIN [None]
  - DYSPNOEA [None]
